FAERS Safety Report 13344855 (Version 1)
Quarter: 2017Q1

REPORT INFORMATION
  Report Type: Spontaneous
  Country: US (occurrence: US)
  Receive Date: 20170316
  Receipt Date: 20170316
  Transmission Date: 20170428
  Serious: Yes (Hospitalization)
  Sender: FDA-Public Use
  Company Number: None

PATIENT
  Age: 49 Year
  Sex: Female
  Weight: 64.33 kg

DRUGS (1)
  1. ULTRAVIST [Suspect]
     Active Substance: IOPROMIDE
     Route: 042
     Dates: start: 20170310

REACTIONS (3)
  - Contrast media reaction [None]
  - Documented hypersensitivity to administered product [None]
  - Urticaria [None]

NARRATIVE: CASE EVENT DATE: 20170310
